FAERS Safety Report 19870832 (Version 1)
Quarter: 2021Q3

REPORT INFORMATION
  Report Type: Spontaneous
  Country: US (occurrence: US)
  Receive Date: 20210921
  Receipt Date: 20210921
  Transmission Date: 20211014
  Serious: No
  Sender: FDA-Public Use
  Company Number: None

PATIENT
  Age: 52 Year
  Sex: Female

DRUGS (1)
  1. VERZENIO [Suspect]
     Active Substance: ABEMACICLIB
     Indication: BREAST CANCER
     Route: 048
     Dates: start: 202108

REACTIONS (5)
  - Emotional disorder [None]
  - Abdominal pain upper [None]
  - Nausea [None]
  - Hypersomnia [None]
  - Transient ischaemic attack [None]

NARRATIVE: CASE EVENT DATE: 202108
